FAERS Safety Report 4754252-9 (Version None)
Quarter: 2005Q3

REPORT INFORMATION
  Report Type: 
  Country: None (occurrence: None)
  Receive Date: 20050829
  Receipt Date: 20050817
  Transmission Date: 20060218
  Serious: Yes (Hospitalization, Other)
  Sender: FDA-Public Use
  Company Number: US-JNJFOC-20041200320

PATIENT
  Sex: Male
  Weight: 136.08 kg

DRUGS (20)
  1. DURAGESIC-100 [Suspect]
     Route: 062
  2. DURAGESIC-100 [Suspect]
     Route: 062
  3. DURAGESIC-100 [Suspect]
     Route: 062
  4. DURAGESIC-100 [Suspect]
     Route: 062
  5. ACTIQ [Suspect]
     Dosage: MAXIMUM OF 4 IN 1 DAY
     Route: 048
  6. ACTIQ [Suspect]
     Indication: PAIN
     Dosage: MAXIMUM OF 4 IN 1 DAY
     Route: 048
  7. CELEBREX [Concomitant]
     Route: 048
  8. ASPIRIN [Concomitant]
     Route: 048
  9. ZOCOR [Concomitant]
     Route: 048
  10. AMITRIPTYLINE HCL [Concomitant]
     Route: 048
  11. MICROZIDE [Concomitant]
     Route: 048
  12. WELLBUTRIN [Concomitant]
  13. MS CONTIN [Concomitant]
     Route: 048
  14. TYLOX [Concomitant]
  15. TYLOX [Concomitant]
     Dosage: AT NIGHT
  16. MERIDIA [Concomitant]
     Route: 048
  17. TRANXENE [Concomitant]
  18. MEPROZINE [Concomitant]
  19. MEPROZINE [Concomitant]
  20. IBUPROFEN [Concomitant]
     Dosage: AT NIGHT

REACTIONS (36)
  - ABDOMINAL PAIN [None]
  - ANXIETY [None]
  - BLINDNESS [None]
  - BRONCHITIS [None]
  - CHEST PAIN [None]
  - CHEST WALL PAIN [None]
  - CONSTIPATION [None]
  - CONVERSION DISORDER [None]
  - DENTAL CARIES [None]
  - DEPRESSION [None]
  - DIARRHOEA [None]
  - DISTURBANCE IN ATTENTION [None]
  - DRUG DEPENDENCE [None]
  - ERECTILE DYSFUNCTION [None]
  - FALL [None]
  - FIBROMYALGIA [None]
  - GOUTY ARTHRITIS [None]
  - HALLUCINATION [None]
  - HAND FRACTURE [None]
  - HOT FLUSH [None]
  - JOINT INJURY [None]
  - LUNG INFILTRATION [None]
  - LUNG NEOPLASM [None]
  - MALAISE [None]
  - MOUTH INJURY [None]
  - MYOCARDIAL INFARCTION [None]
  - POLYNEUROPATHY [None]
  - SKIN IRRITATION [None]
  - SKIN LESION [None]
  - SUICIDAL IDEATION [None]
  - SYNCOPE [None]
  - TENDON RUPTURE [None]
  - THERAPEUTIC RESPONSE DECREASED [None]
  - TREMOR [None]
  - URINE FLOW DECREASED [None]
  - WEIGHT INCREASED [None]
